FAERS Safety Report 18734094 (Version 2)
Quarter: 2021Q1

REPORT INFORMATION
  Report Type: Spontaneous
  Country: US (occurrence: US)
  Receive Date: 20210113
  Receipt Date: 20210326
  Transmission Date: 20210419
  Serious: Yes (Death)
  Sender: FDA-Public Use
  Company Number: US-STRIDES ARCOLAB LIMITED-2021SP000551

PATIENT

DRUGS (2)
  1. RANITIDINE. [Suspect]
     Active Substance: RANITIDINE
     Dosage: UNK (RANITIDINE)
     Route: 065
     Dates: start: 2004, end: 2019
  2. RANITIDINE. [Suspect]
     Active Substance: RANITIDINE
     Indication: PRODUCT USED FOR UNKNOWN INDICATION
     Dosage: UNK (ZANTAC)
     Route: 065
     Dates: start: 2004, end: 2019

REACTIONS (2)
  - Gastrointestinal carcinoma [Fatal]
  - Colorectal cancer [Fatal]

NARRATIVE: CASE EVENT DATE: 201801
